FAERS Safety Report 25808504 (Version 1)
Quarter: 2025Q3

REPORT INFORMATION
  Report Type: Spontaneous
  Country: US (occurrence: US)
  Receive Date: 20250916
  Receipt Date: 20250916
  Transmission Date: 20251021
  Serious: No
  Sender: INCYTE
  Company Number: US-INCYTE CORPORATION-2025IN008187

PATIENT
  Age: 84 Year
  Weight: 71.288 kg

DRUGS (2)
  1. JAKAFI [Suspect]
     Active Substance: RUXOLITINIB
     Indication: Myelofibrosis
     Dosage: 10 MILLIGRAM, BID
  2. JAKAFI [Suspect]
     Active Substance: RUXOLITINIB
     Dosage: 10 MILLIGRAM, BID

REACTIONS (6)
  - Fall [Unknown]
  - Asthenia [Unknown]
  - Arthritis [Unknown]
  - Decreased activity [Unknown]
  - Haemoglobin decreased [Unknown]
  - Contusion [Unknown]
